FAERS Safety Report 7912866 (Version 2)
Quarter: 2013Q1

REPORT INFORMATION
  Report Type: Spontaneous
  Country: US (occurrence: None)
  Receive Date: 20110405
  Receipt Date: 20130225
  Transmission Date: 20140127
  Serious: Yes (Hospitalization, Other)
  Sender: FDA-Public Use
  Company Number: 2011AP000498

PATIENT
  Age: 41 Year
  Sex: Male

DRUGS (6)
  1. LEVETIRACETAM [Suspect]
     Indication: CONVULSION
     Dosage: 1500 MG; BID;, 63 GM;
  2. CARBAMAZEPINE [Concomitant]
  3. LAMOTRIGINE [Concomitant]
  4. CITALOPRAM [Concomitant]
  5. AMITRIPTYLINE [Concomitant]
  6. CLORAZEPATE DIPOTASSIUM [Concomitant]

REACTIONS (7)
  - Vision blurred [None]
  - Ataxia [None]
  - Leukopenia [None]
  - Thrombocytopenia [None]
  - Overdose [None]
  - Depression [None]
  - Economic problem [None]
